FAERS Safety Report 5310786-X (Version None)
Quarter: 2007Q2

REPORT INFORMATION
  Report Type: 
  Country: None (occurrence: None)
  Receive Date: 20070428
  Receipt Date: 20070418
  Transmission Date: 20071010
  Serious: Yes (Hospitalization, Other)
  Sender: FDA-Public Use
  Company Number: JP-PFIZER INC-2007019792

PATIENT
  Age: 83 Year
  Sex: Male

DRUGS (10)
  1. LIPITOR [Suspect]
     Indication: HYPERCHOLESTEROLAEMIA
     Route: 048
  2. DILTIAZEM HCL [Interacting]
     Indication: ANGINA PECTORIS
     Dosage: DAILY DOSE:200MG
     Route: 048
     Dates: start: 20070306, end: 20070307
  3. GASTER [Concomitant]
     Dosage: DAILY DOSE:20MG
     Route: 048
  4. FRANDOL [Concomitant]
     Dosage: DAILY DOSE:40MG
     Route: 062
  5. ITOROL [Concomitant]
     Dosage: DAILY DOSE:40MG
     Route: 048
  6. TICLOPIDINE HCL [Concomitant]
     Dosage: DAILY DOSE:200MG
     Route: 048
  7. ASPIRIN [Concomitant]
     Dosage: DAILY DOSE:100MG
     Route: 048
  8. RENIVACE [Concomitant]
     Dosage: DAILY DOSE:5MG
     Route: 048
  9. DEPAS [Concomitant]
     Dosage: DAILY DOSE:1.5MG
     Route: 048
  10. AMARYL [Concomitant]
     Dosage: DAILY DOSE:4MG
     Route: 048

REACTIONS (2)
  - BRADYCARDIA [None]
  - DRUG INTERACTION [None]
